FAERS Safety Report 4342095-X (Version None)
Quarter: 2004Q1

REPORT INFORMATION
  Report Type: 
  Country: None (occurrence: None)
  Receive Date: 20040329
  Receipt Date: 20040205
  Transmission Date: 20041129
  Serious: No
  Sender: FDA-Public Use
  Company Number: 03P-163-0245473-00

PATIENT
  Age: 73 Year
  Sex: Female
  Weight: 68.0396 kg

DRUGS (8)
  1. HUMIRA [Suspect]
     Indication: RHEUMATOID ARTHRITIS
     Dosage: 40 MG, 1 IN 2 WK, SUBCUTANEOUS
     Route: 058
     Dates: start: 20031216, end: 20040125
  2. HUMIRA [Suspect]
     Indication: RHEUMATOID ARTHRITIS
     Dosage: 40 MG, 1 IN 2 WK, SUBCUTANEOUS
     Route: 058
     Dates: start: 20040204
  3. PREDNISONE [Concomitant]
  4. ACETAMINOPHEN [Concomitant]
  5. PANTOPRAZOLE [Concomitant]
  6. ULTRACET [Concomitant]
  7. MULTIVITAMIN [Concomitant]
  8. MULTI-VITAMINS [Concomitant]

REACTIONS (18)
  - ABDOMINAL PAIN UPPER [None]
  - AMNESIA [None]
  - BREAST DISCHARGE [None]
  - CHEST DISCOMFORT [None]
  - DEPRESSION [None]
  - DYSPNOEA [None]
  - FEELING COLD [None]
  - INJECTION SITE ABSCESS [None]
  - INJECTION SITE BURNING [None]
  - INJECTION SITE ERYTHEMA [None]
  - INJECTION SITE NODULE [None]
  - INSOMNIA [None]
  - NASOPHARYNGITIS [None]
  - PARAESTHESIA [None]
  - PYREXIA [None]
  - SCIATIC NERVE NEUROPATHY [None]
  - SINUSITIS [None]
  - SWELLING FACE [None]
